FAERS Safety Report 8343671-X (Version None)
Quarter: 2012Q1

REPORT INFORMATION
  Report Type: 
  Country: None (occurrence: None)
  Receive Date: 20120330
  Receipt Date: 20110317
  Transmission Date: 20120608
  Serious: Yes (Hospitalization)
  Sender: FDA-Public Use
  Company Number: PHHY2011US21240

PATIENT
  Sex: Female

DRUGS (14)
  1. CALCIUM CARBONATE [Concomitant]
  2. CELEXA [Concomitant]
  3. GABAPENTIN [Concomitant]
  4. MEDROL [Concomitant]
  5. ACULAR [Concomitant]
  6. EXELON [Suspect]
     Indication: DEMENTIA
     Dosage: 4.6 MG, DAILY, TRANSDERMAL
     Route: 062
     Dates: start: 20101001, end: 20101001
  7. ZANTAC (RANITDINE HYDROCHLORIDE) [Concomitant]
  8. VITAMIN D [Concomitant]
  9. HYDROCHLOROTHIAZIDE [Concomitant]
  10. DILTIA XT (DILTIAZEM HYDROCHLORIDE) [Concomitant]
  11. EFFEXOR [Concomitant]
  12. QUESTRAN [Concomitant]
  13. RESTASIS [Concomitant]
  14. MURO 128 (SODIUM CHORIDE) [Concomitant]

REACTIONS (4)
  - DIARRHOEA [None]
  - DYSGEUSIA [None]
  - DEHYDRATION [None]
  - VOMITING [None]
